FAERS Safety Report 8608319-5 (Version None)
Quarter: 2012Q3

REPORT INFORMATION
  Report Type: 
  Country: None (occurrence: None)
  Receive Date: 20120821
  Receipt Date: 20120810
  Transmission Date: 20120928
  Serious: Yes (Other)
  Sender: FDA-Public Use
  Company Number: US-JNJFOC-20120807590

PATIENT
  Sex: Female
  Weight: 79.38 kg

DRUGS (6)
  1. CONCERTA [Suspect]
     Indication: NARCOLEPSY
     Route: 048
     Dates: start: 20070101, end: 20110501
  2. SYNTHROID [Concomitant]
     Indication: HYPOTHYROIDISM
     Route: 048
  3. SAVELLA [Concomitant]
     Indication: DEPRESSION
     Route: 048
     Dates: end: 20120801
  4. UNKNOWN MEDICATION [Concomitant]
     Indication: GASTROOESOPHAGEAL REFLUX DISEASE
     Route: 048
  5. METHYLPHENIDATE HCL [Suspect]
     Indication: NARCOLEPSY
     Route: 048
     Dates: start: 20110501
  6. CLONAZEPAM [Concomitant]
     Indication: PANIC DISORDER
     Dosage: 0.5MG AS NEEDED
     Route: 048

REACTIONS (8)
  - HEART RATE INCREASED [None]
  - OFF LABEL USE [None]
  - ABDOMINAL PAIN [None]
  - HEART RATE ABNORMAL [None]
  - WEIGHT INCREASED [None]
  - DYSPNOEA [None]
  - ABDOMINAL DISTENSION [None]
  - ABNORMAL LOSS OF WEIGHT [None]
